FAERS Safety Report 4735126-6 (Version None)
Quarter: 2005Q3

REPORT INFORMATION
  Report Type: 
  Country: None (occurrence: None)
  Receive Date: 20050804
  Receipt Date: 20050719
  Transmission Date: 20060218
  Serious: Yes (Other)
  Sender: FDA-Public Use
  Company Number: USA0507103366

PATIENT
  Age: 12 Year
  Sex: Male

DRUGS (1)
  1. STRATTERA [Suspect]
     Dosage: 80 MG

REACTIONS (1)
  - CONVULSION [None]
